FAERS Safety Report 18869465 (Version 1)
Quarter: 2021Q1

REPORT INFORMATION
  Report Type: Spontaneous
  Country: NL (occurrence: NL)
  Receive Date: 20210210
  Receipt Date: 20210210
  Transmission Date: 20210420
  Serious: Yes (Other)
  Sender: FDA-Public Use
  Company Number: NL-AUROBINDO-AUR-APL-2021-005063

PATIENT
  Sex: Female

DRUGS (1)
  1. TERBINAFINE  250 MG TABLETS [Suspect]
     Active Substance: TERBINAFINE
     Indication: ONYCHOMYCOSIS
     Dosage: 250 MILLIGRAM, ONCE A DAY
     Route: 065
     Dates: start: 20201210, end: 20210121

REACTIONS (1)
  - Renal impairment [Recovered/Resolved]
